FAERS Safety Report 7957031-4 (Version None)
Quarter: 2011Q4

REPORT INFORMATION
  Report Type: 
  Country: None (occurrence: None)
  Receive Date: 20111205
  Receipt Date: 20111205
  Transmission Date: 20120403
  Serious: Yes (Hospitalization, Other)
  Sender: FDA-Public Use
  Company Number: None

PATIENT
  Age: 33 Year
  Sex: Female
  Weight: 74.842 kg

DRUGS (1)
  1. VIMPAT [Suspect]
     Indication: CONVULSION
     Dosage: 200MG
     Route: 048
     Dates: start: 20101123, end: 20110312

REACTIONS (12)
  - SOMNOLENCE [None]
  - FATIGUE [None]
  - DIZZINESS [None]
  - VISION BLURRED [None]
  - SOCIAL PHOBIA [None]
  - REGRESSIVE BEHAVIOUR [None]
  - NAUSEA [None]
  - FEELING ABNORMAL [None]
  - VOMITING [None]
  - DIPLOPIA [None]
  - HEART RATE INCREASED [None]
  - HALLUCINATION, VISUAL [None]
